FAERS Safety Report 5149708-3 (Version None)
Quarter: 2006Q4

REPORT INFORMATION
  Report Type: 
  Country: None (occurrence: None)
  Receive Date: 20061113
  Receipt Date: 20061030
  Transmission Date: 20070319
  Serious: Yes (Other)
  Sender: FDA-Public Use
  Company Number: GB-ROCHE-469590

PATIENT
  Age: 21 Year
  Sex: Male
  Weight: 83 kg

DRUGS (1)
  1. ROACCUTANE [Suspect]
     Indication: DRUG USE FOR UNKNOWN INDICATION
     Route: 048
     Dates: start: 20060803, end: 20060927

REACTIONS (2)
  - ADJUSTMENT DISORDER [None]
  - DEPRESSION [None]
